FAERS Safety Report 8734880 (Version 2)
Quarter: 2012Q4

REPORT INFORMATION
  Report Type: 
  Country: US (occurrence: US)
  Receive Date: 20120821
  Receipt Date: 20120927
  Transmission Date: 20130627
  Serious: Yes (Other)
  Sender: FDA-Public Use
  Company Number: US-PFIZER INC-2012199577

PATIENT
  Sex: Male

DRUGS (2)
  1. GABAPENTIN [Suspect]
     Indication: NEURALGIA
     Dosage: 300 mg, 2x/day
     Route: 048
     Dates: start: 2009
  2. NORCO [Concomitant]
     Dosage: hydrocodone bitartrate 10 (units not provided)/ paracetamol 325 (units not provided)

REACTIONS (4)
  - Emotional disorder [Recovered/Resolved]
  - Paranoia [Recovered/Resolved]
  - Irritability [Recovered/Resolved]
  - Fear [Recovered/Resolved]
